FAERS Safety Report 5158407-3 (Version None)
Quarter: 2006Q4

REPORT INFORMATION
  Report Type: 
  Country: None (occurrence: None)
  Receive Date: 20061128
  Receipt Date: 20061123
  Transmission Date: 20070319
  Serious: Yes (Hospitalization)
  Sender: FDA-Public Use
  Company Number: DE-AVENTIS-200613432DE

PATIENT
  Sex: Female

DRUGS (1)
  1. ARAVA [Suspect]
     Dosage: DOSE: NOT REPORTED
     Dates: start: 20060101, end: 20060101

REACTIONS (2)
  - HEPATOTOXICITY [None]
  - TOXIC EPIDERMAL NECROLYSIS [None]
